FAERS Safety Report 8826765 (Version 1)
Quarter: 2012Q4

REPORT INFORMATION
  Report Type: 
  Country: FR (occurrence: FR)
  Receive Date: 20121005
  Receipt Date: 20121005
  Transmission Date: 20130627
  Serious: Yes (Hospitalization)
  Sender: FDA-Public Use
  Company Number: FR-GLAXOSMITHKLINE-B0833097A

PATIENT
  Age: 85 Year
  Sex: Female
  Weight: 85 kg

DRUGS (3)
  1. ARIXTRA [Suspect]
     Indication: PULMONARY EMBOLISM
     Dosage: 7.5MG Per day
     Route: 058
     Dates: start: 20120907, end: 20120916
  2. COUMADINE [Suspect]
     Indication: PULMONARY EMBOLISM
     Dosage: 7MG At night
     Route: 048
     Dates: start: 201209, end: 20120917
  3. TAREG [Concomitant]
     Dosage: 40UNIT In the morning

REACTIONS (12)
  - Shock haemorrhagic [Recovered/Resolved with Sequelae]
  - Abdominal wall haematoma [Recovered/Resolved with Sequelae]
  - Abdominal pain [Unknown]
  - Abdominal mass [Unknown]
  - Tachycardia [Unknown]
  - Anaemia [Unknown]
  - Pallor [Unknown]
  - Conjunctival pallor [Unknown]
  - Vomiting [Unknown]
  - Hypotension [Unknown]
  - Pelvic pain [None]
  - White blood cell count increased [None]
